FAERS Safety Report 15151926 (Version 1)
Quarter: 2018Q3

REPORT INFORMATION
  Report Type: Spontaneous
  Country: BE (occurrence: BE)
  Receive Date: 20180717
  Receipt Date: 20180717
  Transmission Date: 20181010
  Serious: Yes (Other)
  Sender: FDA-Public Use
  Company Number: BE-TEVA-2018-BE-927233

PATIENT
  Sex: Female
  Weight: 22 kg

DRUGS (1)
  1. AMOXICILLIN W/CLAVULANIC ACID [Suspect]
     Active Substance: AMOXICILLIN\CLAVULANIC ACID
     Dosage: 250 MG/62,5 MG/ 5 ML
     Route: 048

REACTIONS (2)
  - Pallor [Unknown]
  - Nausea [Unknown]
